FAERS Safety Report 7005546-8 (Version None)
Quarter: 2010Q3

REPORT INFORMATION
  Report Type: 
  Country: None (occurrence: None)
  Receive Date: 20100921
  Receipt Date: 20100916
  Transmission Date: 20110219
  Serious: Yes (Other)
  Sender: FDA-Public Use
  Company Number: A0766409A

PATIENT
  Age: 58 Year
  Sex: Female

DRUGS (8)
  1. TOPOTECAN [Suspect]
     Dosage: 1.2MGM2 CYCLIC
     Route: 042
     Dates: start: 20080609
  2. INVESTIGATIONAL DRUG [Suspect]
     Dosage: 330MG PER DAY
     Route: 048
     Dates: start: 20080610
  3. NORVASC [Concomitant]
     Indication: HYPERTENSION
     Dosage: 10MG PER DAY
     Route: 048
     Dates: start: 19950101
  4. ENALAPRIL [Concomitant]
     Indication: HYPERTENSION
     Dosage: 40MG PER DAY
     Route: 048
     Dates: start: 19950101
  5. HYDROCHLOROTHIAZIDE [Concomitant]
     Indication: HYPERTENSION
  6. TYLENOL W/ CODEINE [Concomitant]
     Route: 048
     Dates: start: 20071001
  7. ZOFRAN [Concomitant]
     Route: 048
     Dates: start: 20060101
  8. EFFEXOR [Concomitant]
     Dosage: 75MG PER DAY

REACTIONS (3)
  - ANAEMIA [None]
  - PULMONARY EMBOLISM [None]
  - PYREXIA [None]
